FAERS Safety Report 8274534 (Version 5)
Quarter: 2013Q4

REPORT INFORMATION
  Report Type: Report from Study
  Country: US (occurrence: US)
  Receive Date: 20111123
  Receipt Date: 20131108
  Transmission Date: 20140711
  Serious: Yes (Other)
  Sender: FDA-Public Use
  Company Number: US-009507513-2011SP052660

PATIENT
  Sex: Female

DRUGS (3)
  1. PEG-INTRON [Suspect]
     Indication: HEPATITIS C
     Dosage: UNK UNK, UNKNOWN
     Route: 065
     Dates: start: 20111025
  2. MK-8908 [Suspect]
     Indication: HEPATITIS C
     Dosage: UNK UNK, UNKNOWN
     Route: 065
     Dates: start: 20111025
  3. VICTRELIS [Suspect]
     Indication: HEPATITIS C
     Dosage: UNK UNK, UNKNOWN
     Route: 065
     Dates: start: 20111123

REACTIONS (22)
  - Loss of consciousness [Unknown]
  - Teeth brittle [Unknown]
  - Hyperchlorhydria [Unknown]
  - Oral candidiasis [Unknown]
  - Hypersomnia [Unknown]
  - Head injury [Unknown]
  - Hypophagia [Unknown]
  - Dysgeusia [Unknown]
  - Tooth fracture [Unknown]
  - Rash [Unknown]
  - Anaemia [Unknown]
  - Vomiting [Unknown]
  - Weight decreased [Unknown]
  - Alopecia [Unknown]
  - Insomnia [Unknown]
  - Anxiety [Unknown]
  - Fatigue [Unknown]
  - Asthenia [Unknown]
  - Decreased appetite [Unknown]
  - Dyspnoea [Unknown]
  - Malaise [Unknown]
  - Depression [Unknown]
